FAERS Safety Report 4516622-3 (Version None)
Quarter: 2004Q4

REPORT INFORMATION
  Report Type: 
  Country: None (occurrence: None)
  Receive Date: 20041202
  Receipt Date: 20041129
  Transmission Date: 20050328
  Serious: Yes (Hospitalization)
  Sender: FDA-Public Use
  Company Number: US-JNJFOC-20041003359

PATIENT
  Sex: Female
  Weight: 65.77 kg

DRUGS (5)
  1. DURAGESIC [Suspect]
     Route: 062
  2. DURAGESIC [Suspect]
     Route: 062
  3. DURAGESIC [Suspect]
     Route: 062
  4. LIPITOR [Concomitant]
     Route: 049
  5. TRAZODONE HCL [Concomitant]
     Route: 049

REACTIONS (5)
  - APPLICATION SITE BURNING [None]
  - DRUG WITHDRAWAL SYNDROME [None]
  - FORMICATION [None]
  - HYPERSENSITIVITY [None]
  - SKIN BURNING SENSATION [None]
